FAERS Safety Report 5221873-9 (Version None)
Quarter: 2007Q1

REPORT INFORMATION
  Report Type: 
  Country: None (occurrence: None)
  Receive Date: 20070129
  Receipt Date: 20070117
  Transmission Date: 20070707
  Serious: Yes (Hospitalization)
  Sender: FDA-Public Use
  Company Number: US-ROCHE-479916

PATIENT
  Age: 60 Year
  Sex: Female
  Weight: 75.7 kg

DRUGS (11)
  1. CAPECITABINE [Suspect]
     Route: 065
     Dates: start: 20060627
  2. CAPECITABINE [Suspect]
     Route: 065
  3. BLINDED BEVACIZUMAB [Suspect]
     Route: 042
     Dates: start: 20060627
  4. LEVOTHYROXINE SODIUM [Concomitant]
  5. DICLOFENAC SODIUM [Concomitant]
  6. CLONAZEPAM [Concomitant]
  7. BUPROPION HYDROCHLORIDE [Concomitant]
  8. ALBUTEROL [Concomitant]
  9. QUININE SULFATE [Concomitant]
  10. LISINOPRIL [Concomitant]
  11. HYDROCHLOROTHIAZIDE [Concomitant]

REACTIONS (3)
  - DIAPHRAGMATIC HERNIA [None]
  - METASTATIC NEOPLASM [None]
  - PLEURAL EFFUSION [None]
